APPROVED DRUG PRODUCT: DICLOFENAC SODIUM
Active Ingredient: DICLOFENAC SODIUM
Strength: 0.1%
Dosage Form/Route: SOLUTION/DROPS;OPHTHALMIC
Application: A077845 | Product #001
Applicant: SCIEGEN PHARMACEUTICALS INC
Approved: Apr 17, 2008 | RLD: No | RS: No | Type: DISCN